FAERS Safety Report 5623085-3 (Version None)
Quarter: 2008Q1

REPORT INFORMATION
  Report Type: 
  Country: None (occurrence: None)
  Receive Date: 20080212
  Receipt Date: 20080205
  Transmission Date: 20080703
  Serious: Yes (Other)
  Sender: FDA-Public Use
  Company Number: FRWYE311514SEP07

PATIENT
  Sex: Female
  Weight: 69 kg

DRUGS (5)
  1. EFFEXOR [Suspect]
     Indication: DEPRESSION
     Dosage: UNKNOWN
     Route: 048
     Dates: start: 20070717, end: 20070808
  2. LEVOTHYROX [Concomitant]
     Route: 048
     Dates: start: 19950101
  3. PIASCLEDINE [Concomitant]
     Dosage: 2 TABLETS TOTAL DAILY
     Route: 048
     Dates: start: 20070701
  4. BROMAZEPAM [Concomitant]
     Route: 048
     Dates: start: 20070702, end: 20070911
  5. PARACETAMOL [Concomitant]
     Dosage: 3 G TOTAL DAILY
     Route: 048
     Dates: end: 20070911

REACTIONS (4)
  - ANAEMIA MEGALOBLASTIC [None]
  - BONE MARROW FAILURE [None]
  - ERYTHROBLASTOSIS [None]
  - HAPTOGLOBIN DECREASED [None]
